FAERS Safety Report 9706701 (Version 1)
Quarter: 2013Q4

REPORT INFORMATION
  Report Type: Spontaneous
  Country: GB (occurrence: GB)
  Receive Date: 20131125
  Receipt Date: 20131125
  Transmission Date: 20140711
  Serious: Yes (Other)
  Sender: FDA-Public Use
  Company Number: GB-MYLANLABS-2013S1025487

PATIENT
  Age: 66 Year
  Sex: Male
  Weight: 57 kg

DRUGS (5)
  1. ONDANSETRON [Suspect]
     Indication: ANTIEMETIC SUPPORTIVE CARE
     Route: 042
  2. ONDANSETRON [Suspect]
     Route: 042
  3. OXALIPLATIN [Suspect]
     Indication: OESOPHAGEAL CARCINOMA
     Route: 042
  4. RALTITREXED [Suspect]
     Indication: OESOPHAGEAL CARCINOMA
     Route: 042
  5. DEXAMETHASONE [Concomitant]
     Indication: PRODUCT USED FOR UNKNOWN INDICATION

REACTIONS (2)
  - Blister [Unknown]
  - Rash erythematous [Unknown]
